FAERS Safety Report 10753426 (Version 1)
Quarter: 2015Q1

REPORT INFORMATION
  Report Type: Spontaneous
  Country: DK (occurrence: DK)
  Receive Date: 20150131
  Receipt Date: 20150131
  Transmission Date: 20150721
  Serious: Yes (Other)
  Sender: FDA-Public Use
  Company Number: PHHY2015DK008750

PATIENT
  Age: 19 Year
  Sex: Female
  Weight: 72 kg

DRUGS (1)
  1. VIBRADOX [Suspect]
     Active Substance: DOXYCYCLINE
     Indication: PRODUCT USED FOR UNKNOWN INDICATION
     Dosage: 100 MG, QD
     Route: 048
     Dates: start: 20130928, end: 20130929

REACTIONS (4)
  - Haematemesis [Recovered/Resolved]
  - Gastric ulcer haemorrhage [Recovered/Resolved]
  - Dizziness [Recovered/Resolved]
  - Malaise [Recovered/Resolved]

NARRATIVE: CASE EVENT DATE: 20130929
